FAERS Safety Report 5359260-5 (Version None)
Quarter: 2007Q2

REPORT INFORMATION
  Report Type: 
  Country: None (occurrence: None)
  Receive Date: 20070615
  Receipt Date: 20070607
  Transmission Date: 20071010
  Serious: Yes (Hospitalization, Other)
  Sender: FDA-Public Use
  Company Number: HQWYE404112APR07

PATIENT
  Sex: Male
  Weight: 73 kg

DRUGS (29)
  1. MYLOTARG [Suspect]
     Indication: ACUTE MYELOID LEUKAEMIA
     Route: 041
     Dates: start: 20061027, end: 20061027
  2. MYLOTARG [Suspect]
     Route: 041
     Dates: start: 20061110, end: 20061110
  3. CYTARABINE [Suspect]
     Indication: ACUTE MYELOID LEUKAEMIA
     Dosage: NOT PROVIDED
     Route: 042
     Dates: start: 20061011, end: 20061015
  4. ETOPOSIDE [Suspect]
     Indication: ACUTE MYELOID LEUKAEMIA
     Dosage: NOT PROVIDED
     Route: 042
     Dates: start: 20061011, end: 20061015
  5. NOVANTRONE [Suspect]
     Indication: ACUTE MYELOID LEUKAEMIA
     Dosage: NOT PROVIDED
     Route: 042
     Dates: start: 20061011, end: 20061015
  6. HEPARIN SODIUM [Concomitant]
     Indication: PROPHYLAXIS
     Dosage: 500 IU/DAY
     Route: 041
     Dates: start: 20061024, end: 20061121
  7. MEYLON [Concomitant]
     Indication: PROPHYLAXIS
     Dosage: 40 ML/DAY
     Route: 041
     Dates: start: 20061024, end: 20061123
  8. HUMULIN 70/30 [Concomitant]
     Dosage: 100 IU/DAY
     Route: 042
     Dates: start: 20061014, end: 20061211
  9. NEORAL [Concomitant]
     Indication: PROPHYLAXIS
     Dosage: 20 MG/DAY
     Route: 048
     Dates: start: 20061025, end: 20061029
  10. NEORAL [Concomitant]
     Dosage: 20 MG/DAY
     Route: 048
     Dates: start: 20061108, end: 20061111
  11. ENTERONON [Concomitant]
     Indication: PROPHYLAXIS
     Dosage: 3G/DAY
     Route: 048
     Dates: start: 20061019
  12. GASTER [Concomitant]
     Indication: PROPHYLAXIS
     Dosage: 20 MG/DAY
     Dates: start: 20061012
  13. ITRACONAZOLE [Concomitant]
     Indication: PROPHYLAXIS
     Dosage: 200 MG/DAY
     Route: 048
     Dates: start: 20061012
  14. FUNGIZONE [Concomitant]
     Indication: PROPHYLAXIS
     Dosage: 500 MG/DAY
     Route: 048
     Dates: start: 20061013
  15. ZYVOX [Concomitant]
     Indication: PAROTITIS
     Dosage: 1200 MG/DAY
     Route: 041
     Dates: start: 20061023, end: 20061106
  16. FUNGUARD [Concomitant]
     Indication: PROPHYLAXIS
     Dosage: 150 MG/DAY
     Route: 041
     Dates: start: 20061013, end: 20061124
  17. MODACIN [Concomitant]
     Dosage: 4 G/DAY
     Route: 041
     Dates: start: 20061020, end: 20061106
  18. VFEND [Concomitant]
     Dosage: 900 MG/DAY
     Route: 041
     Dates: start: 20061124, end: 20061124
  19. VFEND [Concomitant]
     Dosage: 600 MG/DAY
     Route: 041
     Dates: start: 20061125, end: 20061208
  20. MAXIPIME [Concomitant]
     Dosage: 4 G/DAY
     Route: 041
     Dates: start: 20061124
  21. AZACTAM [Concomitant]
     Dosage: 2 G/DAY
     Route: 041
     Dates: start: 20061122, end: 20061124
  22. TIENAM [Concomitant]
     Indication: ENTEROCOLITIS BACTERIAL
     Dosage: 2 G/DAY
     Route: 041
     Dates: start: 20061115, end: 20061121
  23. HABEKACIN [Concomitant]
     Dosage: 200 MG/DAY
     Route: 041
     Dates: start: 20061124, end: 20061211
  24. URSO 250 [Concomitant]
     Indication: PROPHYLAXIS
     Dosage: 300 MG/DAY
     Route: 048
     Dates: start: 20061025, end: 20061227
  25. CIPROFLOXACIN [Concomitant]
     Indication: PROPHYLAXIS
     Dosage: 600 MG/DAY
     Route: 048
     Dates: start: 20061012
  26. ZOLPIDEM TARTRATE [Concomitant]
     Indication: ENTEROCOLITIS BACTERIAL
     Dosage: 10 MG/DAY
     Route: 048
     Dates: start: 20061207
  27. VANCOMYCIN HCL [Concomitant]
     Dosage: 2 G/DAY
     Route: 048
     Dates: start: 20061026, end: 20061101
  28. VANCOMYCIN HCL [Concomitant]
     Dosage: 2 G/DAY
     Route: 048
     Dates: start: 20061129, end: 20061205
  29. VANCOMYCIN HCL [Concomitant]
     Dosage: 2G/DAY
     Route: 041
     Dates: start: 20061115, end: 20061124

REACTIONS (3)
  - FEBRILE NEUTROPENIA [None]
  - PANCYTOPENIA [None]
  - PSEUDOMEMBRANOUS COLITIS [None]
